FAERS Safety Report 10732983 (Version 7)
Quarter: 2015Q2

REPORT INFORMATION
  Report Type: Spontaneous
  Country: US (occurrence: US)
  Receive Date: 20150123
  Receipt Date: 20150424
  Transmission Date: 20150821
  Serious: Yes (Hospitalization)
  Sender: FDA-Public Use
  Company Number: US-UNITED THERAPEUTICS-UNT-2015-000584

PATIENT
  Age: 3 Year
  Sex: Male
  Weight: 15.87 kg

DRUGS (1)
  1. REMODULIN [Suspect]
     Active Substance: TREPROSTINIL
     Indication: PULMONARY HYPERTENSION
     Dosage: 0.020 ?G/KG, CONTINUING
     Route: 058
     Dates: start: 20141024

REACTIONS (11)
  - Dehydration [Recovered/Resolved]
  - Skin irritation [Unknown]
  - Dermatitis contact [Unknown]
  - Catheter site haemorrhage [Unknown]
  - Erythema [Unknown]
  - Pain in extremity [Not Recovered/Not Resolved]
  - Contusion [Unknown]
  - Blood pressure decreased [Unknown]
  - Viral infection [Unknown]
  - Influenza [Unknown]
  - Oedema peripheral [Unknown]

NARRATIVE: CASE EVENT DATE: 201501
